FAERS Safety Report 8606063-1 (Version None)
Quarter: 2012Q3

REPORT INFORMATION
  Report Type: 
  Country: None (occurrence: None)
  Receive Date: 20120820
  Receipt Date: 20120810
  Transmission Date: 20120928
  Serious: Yes (Death)
  Sender: FDA-Public Use
  Company Number: FR-ROCHE-1101042

PATIENT
  Sex: Male

DRUGS (6)
  1. PEMETREXED [Concomitant]
  2. SOLU-MEDROL [Concomitant]
  3. CISPLATIN [Concomitant]
  4. PRIMPERAN ELIXIR [Concomitant]
  5. EMEND [Concomitant]
  6. AVASTIN [Suspect]
     Indication: LUNG NEOPLASM MALIGNANT
     Route: 042
     Dates: start: 20120611, end: 20120611

REACTIONS (2)
  - INFECTION [None]
  - LARGE INTESTINE PERFORATION [None]
